FAERS Safety Report 4486583-4 (Version None)
Quarter: 2004Q4

REPORT INFORMATION
  Report Type: 
  Country: None (occurrence: None)
  Receive Date: 20041026
  Receipt Date: 20041026
  Transmission Date: 20050328
  Serious: Yes (Hospitalization, Other)
  Sender: FDA-Public Use
  Company Number: None

PATIENT
  Age: 50 Year
  Sex: Female
  Weight: 74.8435 kg

DRUGS (3)
  1. DEPO-MEDROL [Suspect]
     Indication: ARACHNOIDITIS
     Dosage: 60, 70, 100
     Dates: start: 19950713
  2. DEPO-MEDROL [Suspect]
     Indication: ARACHNOIDITIS
     Dosage: 60, 70, 100
     Dates: start: 19950720
  3. DEPO-MEDROL [Suspect]
     Indication: ARACHNOIDITIS
     Dosage: 60, 70, 100
     Dates: start: 19950727

REACTIONS (1)
  - LIPOMA [None]
